FAERS Safety Report 10591905 (Version 1)
Quarter: 2014Q4

REPORT INFORMATION
  Report Type: Spontaneous
  Country: GB (occurrence: GB)
  Receive Date: 20141119
  Receipt Date: 20141119
  Transmission Date: 20150529
  Serious: Yes (Hospitalization)
  Sender: FDA-Public Use
  Company Number: PHHY2014GB148139

PATIENT
  Age: 60 Year
  Sex: Male
  Weight: 79.6 kg

DRUGS (12)
  1. LACTULOSE. [Concomitant]
     Active Substance: LACTULOSE
  2. LANSOPRAZOLE. [Concomitant]
     Active Substance: LANSOPRAZOLE
  3. METOCLOPRAMIDE. [Concomitant]
     Active Substance: METOCLOPRAMIDE
  4. CITALOPRAM [Suspect]
     Active Substance: CITALOPRAM HYDROBROMIDE
     Indication: DEPRESSION
     Dates: start: 20111001, end: 20141024
  5. ACE//PARACETAMOL [Concomitant]
  6. CHLORPHENAMINE [Concomitant]
     Active Substance: CHLORPHENIRAMINE MALEATE
  7. AMILORIDE [Concomitant]
     Active Substance: AMILORIDE
  8. DIHYDROCODEINE [Concomitant]
     Active Substance: DIHYDROCODEINE
  9. BACLOFEN. [Concomitant]
     Active Substance: BACLOFEN
  10. VITAMIN B COMP                     /00176001/ [Concomitant]
  11. THIAMINE [Concomitant]
     Active Substance: THIAMINE
  12. FUROSEMIDE. [Concomitant]
     Active Substance: FUROSEMIDE

REACTIONS (2)
  - Electrocardiogram QT prolonged [Recovered/Resolved]
  - Incorrect dose administered [Unknown]

NARRATIVE: CASE EVENT DATE: 20140924
